FAERS Safety Report 10557430 (Version 1)
Quarter: 2014Q4

REPORT INFORMATION
  Report Type: Spontaneous
  Country: US (occurrence: US)
  Receive Date: 20141031
  Receipt Date: 20141031
  Transmission Date: 20150529
  Serious: Yes (Other)
  Sender: FDA-Public Use
  Company Number: US-BAYER-2014-158053

PATIENT
  Age: 25 Year
  Sex: Female

DRUGS (1)
  1. MIRENA [Suspect]
     Active Substance: LEVONORGESTREL
     Indication: PREMENSTRUAL DYSPHORIC DISORDER
     Dosage: 20 MCG/24HR, CONT
     Route: 015
     Dates: start: 201208, end: 20141020

REACTIONS (11)
  - Abdominal pain lower [Recovering/Resolving]
  - Genital haemorrhage [Recovering/Resolving]
  - Headache [Recovering/Resolving]
  - Product use issue [None]
  - Anger [Recovering/Resolving]
  - Alopecia [Not Recovered/Not Resolved]
  - Mood swings [Recovering/Resolving]
  - Nausea [Recovering/Resolving]
  - Menstruation irregular [Recovering/Resolving]
  - Acne [Recovering/Resolving]
  - Depression [Recovering/Resolving]

NARRATIVE: CASE EVENT DATE: 201208
